FAERS Safety Report 8730311 (Version 2)
Quarter: 2013Q2

REPORT INFORMATION
  Report Type: Spontaneous
  Country: PT (occurrence: PT)
  Receive Date: 20120817
  Receipt Date: 20130517
  Transmission Date: 20140414
  Serious: Yes (Death, Congenital Anomaly, Other)
  Sender: FDA-Public Use
  Company Number: PT-ABBOTT-12P-130-0940787-00

PATIENT
  Sex: Female

DRUGS (1)
  1. HUMIRA [Suspect]
     Indication: MATERNAL EXPOSURE TIMING UNSPECIFIED
     Route: 064

REACTIONS (5)
  - Abortion spontaneous [Fatal]
  - Autosomal chromosome anomaly [Unknown]
  - Cardiac valve disease [Unknown]
  - Growth retardation [Unknown]
  - Foetal exposure during pregnancy [Unknown]
